FAERS Safety Report 5170048-0 (Version None)
Quarter: 2006Q4

REPORT INFORMATION
  Report Type: 
  Country: None (occurrence: None)
  Receive Date: 20061201
  Receipt Date: 20061120
  Transmission Date: 20070319
  Serious: Yes (Death)
  Sender: FDA-Public Use
  Company Number: A-US2006-13298

PATIENT
  Age: 66 Year
  Sex: Female
  Weight: 95.2 kg

DRUGS (9)
  1. TRACLEER [Suspect]
     Indication: PULMONARY HYPERTENSION
     Dosage: SEE IMAGE, ORAL
     Route: 048
     Dates: start: 20060804, end: 20060902
  2. TRACLEER [Suspect]
     Indication: PULMONARY HYPERTENSION
     Dosage: SEE IMAGE, ORAL
     Route: 048
     Dates: start: 20060903, end: 20061016
  3. LIPITOR [Concomitant]
  4. ASPIRIN [Concomitant]
  5. LASIX [Concomitant]
  6. IMDUR [Concomitant]
  7. PREDNISONE TAB [Concomitant]
  8. ALBUTEROL [Concomitant]
  9. SPIRIVA [Concomitant]

REACTIONS (5)
  - ALANINE AMINOTRANSFERASE INCREASED [None]
  - ASPARTATE AMINOTRANSFERASE INCREASED [None]
  - CHRONIC OBSTRUCTIVE PULMONARY DISEASE [None]
  - CONDITION AGGRAVATED [None]
  - DISEASE PROGRESSION [None]
